FAERS Safety Report 9015133 (Version 2)
Quarter: 2013Q2

REPORT INFORMATION
  Report Type: Report from Study
  Country: GB (occurrence: GB)
  Receive Date: 20130116
  Receipt Date: 20130509
  Transmission Date: 20140414
  Serious: Yes (Other)
  Sender: FDA-Public Use
  Company Number: GB-AMGEN-GBRCT2013002245

PATIENT
  Age: 64 Year
  Sex: Male
  Weight: 92 kg

DRUGS (7)
  1. ETANERCEPT [Suspect]
     Indication: PRODUCT USED FOR UNKNOWN INDICATION
     Dosage: 25 MG, 2X/WEEK
     Dates: start: 20040617, end: 20110615
  2. METFORMIN [Concomitant]
     Dosage: 500 MG, 2X/DAY
  3. RAMIPRIL [Concomitant]
     Dosage: 10 MG, 1X/DAY
  4. SIMVASTATIN [Concomitant]
     Dosage: 40 MG, 1X/DAY
  5. AMLODIPINE [Concomitant]
     Dosage: 5 MG, UNK
  6. CO-DYDRAMOL [Concomitant]
     Dosage: UNK
  7. PRED-FORTE [Concomitant]
     Dosage: UNK
     Route: 047

REACTIONS (1)
  - Endophthalmitis [Recovered/Resolved with Sequelae]
